FAERS Safety Report 13596276 (Version 1)
Quarter: 2017Q2

REPORT INFORMATION
  Report Type: Spontaneous
  Country: US (occurrence: US)
  Receive Date: 20170531
  Receipt Date: 20170531
  Transmission Date: 20170830
  Serious: No
  Sender: FDA-Public Use
  Company Number: US-JNJFOC-20170331983

PATIENT
  Age: 75 Year
  Sex: Male
  Weight: 99.79 kg

DRUGS (2)
  1. TYLENOL EXTRA STRENGTH [Suspect]
     Active Substance: ACETAMINOPHEN
     Indication: MUSCLE RELAXANT THERAPY
     Dosage: AS NEEDED PAST SIX OR EIGHT NIGHTS
     Route: 065
     Dates: end: 20170327
  2. TYLENOL EXTRA STRENGTH [Suspect]
     Active Substance: ACETAMINOPHEN
     Indication: SLEEP DISORDER THERAPY
     Dosage: AS NEEDED PAST SIX OR EIGHT NIGHTS
     Route: 065
     Dates: end: 20170327

REACTIONS (1)
  - Product use in unapproved indication [Unknown]
